FAERS Safety Report 5178588-5 (Version None)
Quarter: 2006Q4

REPORT INFORMATION
  Report Type: 
  Country: None (occurrence: None)
  Receive Date: 20061208
  Receipt Date: 20061122
  Transmission Date: 20070319
  Serious: Yes (Hospitalization, Other)
  Sender: FDA-Public Use
  Company Number: BR-2005-016058

PATIENT
  Age: 47 Year
  Sex: Male
  Weight: 62 kg

DRUGS (9)
  1. BETASERON [Suspect]
     Indication: RELAPSING-REMITTING MULTIPLE SCLEROSIS
     Dosage: SEE IMAGE
     Route: 058
     Dates: start: 20050621, end: 20050731
  2. BETASERON [Suspect]
     Indication: RELAPSING-REMITTING MULTIPLE SCLEROSIS
     Dosage: SEE IMAGE
     Route: 058
     Dates: start: 20050801, end: 20050822
  3. IBUPROFEN [Concomitant]
  4. IBUPROFEN [Concomitant]
  5. CYCLOBENZAPRINE HCL [Concomitant]
  6. BACLOFEN [Concomitant]
  7. CARBAMAZEPINE [Concomitant]
  8. FOLIC ACID [Concomitant]
  9. COPAXONE [Suspect]

REACTIONS (14)
  - ASTHENIA [None]
  - AZOTAEMIA [None]
  - DISEASE PROGRESSION [None]
  - HEPATIC ENZYME INCREASED [None]
  - HYPOTENSION [None]
  - MALAISE [None]
  - MULTIPLE SCLEROSIS [None]
  - MULTIPLE SCLEROSIS RELAPSE [None]
  - MYELITIS TRANSVERSE [None]
  - SPINAL SHOCK [None]
  - TACHYCARDIA [None]
  - URINARY TRACT INFECTION [None]
  - URINARY TRACT OBSTRUCTION [None]
  - UROSEPSIS [None]
